FAERS Safety Report 7410012-1 (Version None)
Quarter: 2011Q2

REPORT INFORMATION
  Report Type: 
  Country: None (occurrence: None)
  Receive Date: 20110404
  Receipt Date: 20110318
  Transmission Date: 20111010
  Serious: Yes (Hospitalization, Other)
  Sender: FDA-Public Use
  Company Number: 2011P1005060

PATIENT
  Age: 66 Year
  Sex: Male
  Weight: 84.369 kg

DRUGS (13)
  1. MIRTAZAPINE [Concomitant]
  2. LISINOPRIL [Concomitant]
  3. SIMVASTATIN [Concomitant]
  4. JANUVIA [Concomitant]
  5. SAW PALMETTO 500 MG [Concomitant]
  6. ACETYLSALICYLIC ACID SRT [Concomitant]
  7. ATENOLOL [Concomitant]
  8. GLYBURIDE AND METFORMIN HYDROCHLORIDE [Concomitant]
  9. GLUCOSAMINE CHONDROITIN [Concomitant]
  10. AMIODARONE HCL [Suspect]
     Dosage: 1 TABELT;QD;PO ; 4 TABLET;QD;PO ; 1/2 TABLET;FRI;PO ; 1 TABLET;MON;PO
     Route: 048
     Dates: start: 20040101, end: 20060101
  11. AMIODARONE HCL [Suspect]
     Dosage: 1 TABELT;QD;PO ; 4 TABLET;QD;PO ; 1/2 TABLET;FRI;PO ; 1 TABLET;MON;PO
     Route: 048
     Dates: start: 20060101, end: 20060101
  12. MULTI-VITAMIN [Concomitant]
  13. SERTRALINE 100 MG [Concomitant]

REACTIONS (3)
  - MARITAL PROBLEM [None]
  - OVERDOSE [None]
  - CARDIAC STRESS TEST ABNORMAL [None]
